FAERS Safety Report 25686093 (Version 3)
Quarter: 2025Q4

REPORT INFORMATION
  Report Type: Report from Study
  Country: US (occurrence: US)
  Receive Date: 20250815
  Receipt Date: 20251008
  Transmission Date: 20260117
  Serious: Yes (Other)
  Sender: MALLINCKRODT
  Company Number: US-MALLINCKRODT-MNK202504847

PATIENT
  Sex: Female

DRUGS (2)
  1. CORTICOTROPIN [Suspect]
     Active Substance: CORTICOTROPIN
     Indication: Keratitis
     Dosage: 80 UNITS
     Dates: start: 20240209
  2. CORTICOTROPIN [Suspect]
     Active Substance: CORTICOTROPIN
     Dosage: 80 UNITS

REACTIONS (10)
  - Peripheral artery occlusion [Unknown]
  - Gastric ulcer [Unknown]
  - Back pain [Unknown]
  - Abdominal pain upper [Unknown]
  - Arthralgia [Unknown]
  - Adverse event [Recovering/Resolving]
  - Pain [Not Recovered/Not Resolved]
  - Discomfort [Unknown]
  - Insomnia [Not Recovered/Not Resolved]
  - Injection site pain [Unknown]

NARRATIVE: CASE EVENT DATE: 20250101
